FAERS Safety Report 25116523 (Version 2)
Quarter: 2025Q2

REPORT INFORMATION
  Report Type: Spontaneous
  Country: IT (occurrence: IT)
  Receive Date: 20250325
  Receipt Date: 20250402
  Transmission Date: 20250717
  Serious: Yes (Death, Hospitalization, Other)
  Sender: AUROBINDO
  Company Number: IT-MINISAL02-1029115

PATIENT
  Age: 59 Year
  Sex: Female
  Weight: 78 kg

DRUGS (18)
  1. CARBOPLATIN [Suspect]
     Active Substance: CARBOPLATIN
     Indication: Small cell lung cancer
     Route: 042
     Dates: start: 20250127, end: 20250127
  2. TECENTRIQ [Suspect]
     Active Substance: ATEZOLIZUMAB
     Indication: Small cell lung cancer
     Route: 042
     Dates: start: 20250127, end: 20250127
  3. ETOPOSIDE [Suspect]
     Active Substance: ETOPOSIDE
     Indication: Small cell lung cancer
     Dosage: 544.02 MILLIGRAM, ONCE A DAY (544.02 MG DAYS 1, 2, 3 OF A 21 DAY CYCLE)
     Route: 042
     Dates: start: 20250127, end: 20250129
  4. ETOPOSIDE [Suspect]
     Active Substance: ETOPOSIDE
     Dosage: 181 MILLIGRAM, ONCE A DAY (181 MG GIORNI 1, 2, 3 DI UN CICLO DI 21 GIORNI (TOTALE PER CICLO: 544,02
     Route: 042
     Dates: start: 20250127, end: 20250129
  5. ACETYLCARNITINE [Concomitant]
     Active Substance: ACETYLCARNITINE
     Indication: Product used for unknown indication
     Dosage: 1 DOSAGE FORM, TWO TIMES A DAY (1 CPS X 2 /DAY)
     Route: 065
  6. ACETYLCYSTEINE [Concomitant]
     Active Substance: ACETYLCYSTEINE
     Indication: Product used for unknown indication
     Dosage: 1 DOSAGE FORM, TWO TIMES A DAY (ACETILCISTEINA  1 CPR X 2 / DAY)
     Route: 048
  7. PREDNISONE [Concomitant]
     Active Substance: PREDNISONE
     Indication: Product used for unknown indication
     Dosage: 12.5 MILLIGRAM, ONCE A DAY (DELTACORTENE 25 MG 1/2 CPR DAY)
     Route: 048
  8. ESTAZOLAM [Concomitant]
     Active Substance: ESTAZOLAM
     Indication: Product used for unknown indication
     Dosage: 2 MILLIGRAM, ONCE A DAY (ESILGAN 2 MG 1 CPR/DAY)
     Route: 048
  9. FOSTER [Concomitant]
     Active Substance: BECLOMETHASONE\FORMOTEROL
     Indication: Product used for unknown indication
     Dosage: 400 MICROGRAM, ONCE A DAY (200 MCG 2 INHALES IN THE MORNING AND EVENING + 1 INHALATION IN THE AFTERN
  10. FOSTER [Concomitant]
     Active Substance: BECLOMETHASONE\FORMOTEROL
     Dosage: 200 MICROGRAM, ONCE A DAY (200 MCG 2 INHALES IN THE MORNING AND EVENING + 1 INHALATION IN THE AFTERN
  11. LYRICA [Concomitant]
     Active Substance: PREGABALIN
     Indication: Product used for unknown indication
     Dosage: 150 MILLIGRAM, TWO TIMES A DAY (LYRICA 150 MG IN THE MORNING AND 150 MG IN THE EVENING)
     Route: 048
  12. MONTELUKAST [Concomitant]
     Active Substance: MONTELUKAST
     Indication: Product used for unknown indication
     Dosage: 10 MILLIGRAM, ONCE A DAY  (MONTELUKAST 10 MG 1 CPR DIE ORE 8:00)
     Route: 048
  13. QUETIAPINE [Concomitant]
     Active Substance: QUETIAPINE
     Indication: Product used for unknown indication
     Dosage: 25 MILLIGRAM, ONCE A DAY (QUETIAPINE 25 MG 1 CPR/DAY)
     Route: 048
  14. SPIRIVA [Concomitant]
     Active Substance: TIOTROPIUM BROMIDE MONOHYDRATE
     Indication: Product used for unknown indication
     Dosage: 2 DOSAGE FORM, ONCE A DAY (2 INHALATIONS IN THE AFTERNOON)
  15. VENLAFAXINE [Concomitant]
     Active Substance: VENLAFAXINE HYDROCHLORIDE
     Indication: Product used for unknown indication
     Dosage: 75 MILLIGRAM, ONCE A DAY (VENLAFAXINE 75 MG 8:00 AM + VENLAFAXINE 37.5 MG 12:00 PM)
     Route: 048
  16. VENLAFAXINE [Concomitant]
     Active Substance: VENLAFAXINE HYDROCHLORIDE
     Dosage: 37.5 MILLIGRAM, ONCE A DAY (VENLAFAXINE 75 MG 8:00 AM + VENLAFAXINE 37.5 MG 12:00 PM)
     Route: 065
  17. ESOMEPRAZOLE [Concomitant]
     Active Substance: ESOMEPRAZOLE
     Indication: Product used for unknown indication
     Dosage: 40 MILLIGRAM, ONCE A DAY (ESOMEPRAZOLE 40 MG 1 CPR/DAY)
     Route: 048
  18. MEMANTINE [Concomitant]
     Active Substance: MEMANTINE
     Indication: Product used for unknown indication
     Dosage: 10 MILLIGRAM, ONCE A DAY (MEMANTINA 20 MG 1/2 CPR/DAY)
     Route: 048

REACTIONS (2)
  - Leukopenia [Fatal]
  - Thrombocytopenia [Fatal]

NARRATIVE: CASE EVENT DATE: 20250206
